FAERS Safety Report 22122733 (Version 1)
Quarter: 2023Q1

REPORT INFORMATION
  Report Type: Spontaneous
  Country: ES (occurrence: ES)
  Receive Date: 20230321
  Receipt Date: 20230321
  Transmission Date: 20230418
  Serious: Yes (Life-Threatening)
  Sender: FDA-Public Use
  Company Number: None

PATIENT
  Age: 47 Year
  Sex: Female

DRUGS (7)
  1. RINVOQ [Suspect]
     Active Substance: UPADACITINIB
     Indication: Psoriatic arthropathy
     Dosage: 1 COMPRIMIDO CADA 24 HORAS?15 MG COMPRIMIDOS DE LIBERACION PROLONGADA, 28 COMPRIMIDOS
     Route: 048
     Dates: start: 20230117, end: 20230314
  2. ARCOXIA [Concomitant]
     Active Substance: ETORICOXIB
     Indication: Product used for unknown indication
     Dosage: 1 COMPRIMIDO CADA 24 HORAS?60 MG COMPRIMIDOS RECUBIERTOS CON PELICULA , 28 COMPRIMIDOS
     Dates: start: 20210322
  3. ALMOTRIPTAN MALATE [Concomitant]
     Active Substance: ALMOTRIPTAN MALATE
     Indication: Migraine
     Dosage: 1 COMPRIMIDO CADA 24 HORAS?12,5 MG COMPRIMIDOS RECUBIERTOS CON PELICULA, 9 COMPRIMIDOS
     Route: 048
     Dates: start: 20220621
  4. TRAMADOL PARACETAMOL CINFA [Concomitant]
     Indication: Product used for unknown indication
     Dosage: 1 COMPRIMIDO CADA 8 HORAS?37,5 MG/325 MG COMPRIMIDOS RECUBIERTOS CON PELICULA EFG , 60 COMPRIMIDOS
     Dates: start: 20221122
  5. LEVOTHYROXINE SODIUM [Concomitant]
     Active Substance: LEVOTHYROXINE SODIUM
     Indication: Product used for unknown indication
     Dosage: 1 COMPRIMIDO CADA 24 HORAS?75 MICROGRAMOS COMPRIMIDOS, 100 COMPRIMIDOS
     Dates: start: 20190211
  6. ALPRAZOLAM CINFA [Concomitant]
     Indication: Product used for unknown indication
     Dosage: 1 COMPRIMIDO CADA 24 HORAS? 0,25 MG COMPRIMIDOS EFG, 30 COMPRIMIDOS
     Dates: start: 20170308
  7. ESOMEPRAZOL SANDOZ [Concomitant]
     Indication: Product used for unknown indication
     Dosage: 1 COMPRIMIDO CADA 24 HORAS?20 MG COMPRIMIDOS GASTRORRESISTENTES EFG , 56 COMPRIMIDOS
     Dates: start: 20191104

REACTIONS (1)
  - Deep vein thrombosis [Recovering/Resolving]

NARRATIVE: CASE EVENT DATE: 20230302
